FAERS Safety Report 4679124-X (Version None)
Quarter: 2005Q2

REPORT INFORMATION
  Report Type: 
  Country: None (occurrence: None)
  Receive Date: 20050527
  Receipt Date: 20050203
  Transmission Date: 20051028
  Serious: No
  Sender: FDA-Public Use
  Company Number: PHEH2005US01632

PATIENT
  Age: 59 Year
  Sex: Female

DRUGS (2)
  1. ZELNORM [Suspect]
     Indication: IRRITABLE BOWEL SYNDROME
     Dosage: 1/2 TAB OF 6MG BID, ORAL;  ONE TAB 6MG AM+1/2 TAB PM, ORAL
     Route: 048
     Dates: start: 20041201
  2. MIRALAX [Concomitant]

REACTIONS (3)
  - FAECAL VOLUME DECREASED [None]
  - FREQUENT BOWEL MOVEMENTS [None]
  - WEIGHT DECREASED [None]
